FAERS Safety Report 15290378 (Version 1)
Quarter: 2018Q3

REPORT INFORMATION
  Report Type: Spontaneous
  Country: DK (occurrence: DK)
  Receive Date: 20180817
  Receipt Date: 20180817
  Transmission Date: 20181010
  Serious: Yes (Death, Life-Threatening, Hospitalization, Other)
  Sender: FDA-Public Use
  Company Number: DK-SA-2018SA222708

PATIENT
  Age: 32 Year
  Sex: Female
  Weight: 83 kg

DRUGS (20)
  1. CLONAZEPAM. [Suspect]
     Active Substance: CLONAZEPAM
     Dosage: UNK
     Route: 048
     Dates: start: 19941008
  2. QUETIAPINE FUMARATE. [Suspect]
     Active Substance: QUETIAPINE FUMARATE
     Indication: PSYCHOTIC DISORDER
     Dosage: 450 MG, UNK
     Route: 048
     Dates: start: 19921122, end: 20050714
  3. STILNOCT [Suspect]
     Active Substance: ZOLPIDEM TARTRATE
     Indication: PRODUCT USED FOR UNKNOWN INDICATION
     Route: 065
  4. CLONAZEPAM. [Suspect]
     Active Substance: CLONAZEPAM
     Indication: PSYCHOTIC DISORDER
     Dosage: 2 MG, QD
     Route: 048
     Dates: start: 19940810, end: 20050714
  5. LYSANTIN [Suspect]
     Active Substance: ORPHENADRINE HYDROCHLORIDE
     Indication: PRODUCT USED FOR UNKNOWN INDICATION
     Route: 065
  6. PANTOLOC [PANTOPRAZOLE] [Concomitant]
     Indication: GASTRIC ULCER
     Dosage: 40 MILLIGRAM(S)
     Route: 048
     Dates: start: 19990815, end: 20050714
  7. PINEX [PARACETAMOL] [Concomitant]
     Dosage: 1 GRAM AS NEEDED NO MORE THAN 3 TIMES DAILY
     Route: 048
  8. DEPRAKINE [Suspect]
     Active Substance: VALPROIC ACID
     Indication: EPILEPSY
     Dosage: UNK
     Route: 065
     Dates: start: 1984
  9. CHLORPROTHIXENE [Suspect]
     Active Substance: CHLORPROTHIXENE
     Indication: PSYCHOTIC DISORDER
     Dosage: UNK
     Route: 048
     Dates: start: 19980712, end: 20050714
  10. DISIPAL [Suspect]
     Active Substance: ORPHENADRINE HYDROCHLORIDE
     Indication: ADVERSE DRUG REACTION
     Dosage: 50 MG, QD
     Route: 048
     Dates: start: 19990714, end: 20050714
  11. RIVOTRIL [Suspect]
     Active Substance: CLONAZEPAM
     Route: 048
     Dates: start: 19941008
  12. ORAP [Suspect]
     Active Substance: PIMOZIDE
     Indication: PSYCHOTIC DISORDER
     Dosage: 6 MILLIGRAM(S)
     Route: 048
     Dates: start: 19921014, end: 20050714
  13. OXAZEPAM. [Concomitant]
     Active Substance: OXAZEPAM
     Dosage: 15 MG AS NEEDED NO MORE THAN 4 TIMES DAILY
     Route: 065
  14. OXCARBAZEPINE. [Suspect]
     Active Substance: OXCARBAZEPINE
     Indication: EPILEPSY
     Dosage: UNK
     Route: 065
     Dates: end: 199701
  15. RISPERIDONE. [Suspect]
     Active Substance: RISPERIDONE
     Indication: SCHIZOPHRENIA
     Dosage: 2 MG, QD
     Route: 048
     Dates: start: 20050706, end: 20050714
  16. PRIMPERAN [Concomitant]
     Active Substance: METOCLOPRAMIDE HYDROCHLORIDE
     Dosage: 20 MG AS NEEDED NO MORE THAN 2 TIMES DAILY
     Route: 054
  17. DESOGESTREL AND ETHINYL ESTRADIOL [Concomitant]
     Active Substance: DESOGESTREL\ETHINYL ESTRADIOL
     Route: 048
  18. RISPERDAL CONSTA [Suspect]
     Active Substance: RISPERIDONE
     Indication: SCHIZOPHRENIA
     Dosage: 25 MG, QOW
     Route: 030
     Dates: start: 20050706, end: 20050714
  19. ROXIAM [Suspect]
     Active Substance: REMOXIPRIDE HYDROCHLORIDE
     Indication: PRODUCT USED FOR UNKNOWN INDICATION
     Dosage: UNK
     Route: 065
     Dates: start: 19920820
  20. GAVISCON [ALUMINIUM HYDROXIDE;CALCIUM CARBONATE;SODIUM ALGINATE;SODIUM [Concomitant]
     Dosage: UNK UNK, UNK
     Route: 048

REACTIONS (23)
  - Restlessness [Not Recovered/Not Resolved]
  - Aggression [Unknown]
  - Neuroleptic malignant syndrome [Not Recovered/Not Resolved]
  - Weight increased [Not Recovered/Not Resolved]
  - Sudden death [Fatal]
  - Toothache [Unknown]
  - Dyspnoea [Unknown]
  - Abdominal pain upper [Unknown]
  - Seizure [Fatal]
  - Vomiting [Not Recovered/Not Resolved]
  - Vomiting projectile [Unknown]
  - Weight decreased [Unknown]
  - Schizophrenia [Unknown]
  - Oropharyngeal pain [Unknown]
  - Sleep disorder [Not Recovered/Not Resolved]
  - Dizziness [Unknown]
  - Ill-defined disorder [Unknown]
  - Anxiety [Unknown]
  - Hallucination [Unknown]
  - Nightmare [Not Recovered/Not Resolved]
  - Hepatic pain [Unknown]
  - Amenorrhoea [Recovered/Resolved]
  - Psychotic disorder [Unknown]

NARRATIVE: CASE EVENT DATE: 1993
